FAERS Safety Report 8303822-X (Version None)
Quarter: 2012Q2

REPORT INFORMATION
  Report Type: 
  Country: None (occurrence: None)
  Receive Date: 20120423
  Receipt Date: 20120416
  Transmission Date: 20120825
  Serious: Yes (Hospitalization, Other)
  Sender: FDA-Public Use
  Company Number: PHEH2012US008089

PATIENT
  Sex: Male

DRUGS (4)
  1. CLOZAPINE [Suspect]
     Dosage: 100 MG, QD
  2. CLOZAPINE [Suspect]
     Dosage: 175 MG, 100 MG ONCE A DAY AND 25 MG THREE TIMES A DAY
  3. CLOZARIL [Suspect]
     Dosage: 150 MG, UNK
  4. CLOZARIL [Suspect]
     Dosage: 175 MG, UNK
     Dates: start: 20091201

REACTIONS (2)
  - DILATATION VENTRICULAR [None]
  - SCHIZOPHRENIA [None]
